FAERS Safety Report 6733986-0 (Version None)
Quarter: 2010Q2

REPORT INFORMATION
  Report Type: 
  Country: None (occurrence: None)
  Receive Date: 20100520
  Receipt Date: 20100514
  Transmission Date: 20101027
  Serious: Yes (Other)
  Sender: FDA-Public Use
  Company Number: JP-BAYER-200812661BYL

PATIENT
  Age: 61 Year
  Sex: Male
  Weight: 60 kg

DRUGS (14)
  1. NEXAVAR [Suspect]
     Indication: RENAL CELL CARCINOMA
     Dosage: TOTAL DAILY DOSE: 800 MG  UNIT DOSE: 200 MG
     Route: 048
     Dates: start: 20080710, end: 20080807
  2. NEXAVAR [Suspect]
     Dosage: TOTAL DAILY DOSE: 400 MG  UNIT DOSE: 200 MG
     Route: 048
     Dates: start: 20080808, end: 20080821
  3. NEXAVAR [Suspect]
     Dosage: TOTAL DAILY DOSE: 200 MG  UNIT DOSE: 200 MG
     Route: 048
     Dates: start: 20081003, end: 20081028
  4. NEXAVAR [Suspect]
     Dosage: UNIT DOSE: 200 MG
     Route: 048
     Dates: start: 20081114, end: 20081211
  5. NEXAVAR [Suspect]
     Dosage: UNIT DOSE: 200 MG
     Route: 048
     Dates: start: 20081212, end: 20090123
  6. DOGMATYL [Concomitant]
     Indication: PROPHYLAXIS
     Route: 048
     Dates: start: 20080710, end: 20080802
  7. HALCION [Concomitant]
     Indication: PROPHYLAXIS
     Route: 048
     Dates: start: 20081003, end: 20081016
  8. HALCION [Concomitant]
     Route: 048
     Dates: start: 20080710, end: 20080802
  9. DEPROMEL [Concomitant]
     Indication: PROPHYLAXIS
     Route: 048
     Dates: start: 20081017, end: 20081028
  10. DEPROMEL [Concomitant]
     Route: 048
     Dates: start: 20080822, end: 20080904
  11. DEPROMEL [Concomitant]
     Route: 048
     Dates: start: 20081003, end: 20081009
  12. PAXIL [Concomitant]
     Indication: PROPHYLAXIS
     Route: 048
     Dates: start: 20080905, end: 20080909
  13. MYSLEE [Concomitant]
     Indication: PROPHYLAXIS
     Route: 048
     Dates: start: 20081017, end: 20081028
  14. SOLANAX [Concomitant]
     Indication: ANXIOLYTIC THERAPY
     Route: 048
     Dates: start: 20081114, end: 20090206

REACTIONS (2)
  - DECREASED APPETITE [None]
  - HEPATIC FUNCTION ABNORMAL [None]
